FAERS Safety Report 16836605 (Version 3)
Quarter: 2020Q1

REPORT INFORMATION
  Report Type: Report from Study
  Country: None (occurrence: US)
  Receive Date: 20190921
  Receipt Date: 20200326
  Transmission Date: 20200409
  Serious: Yes (Other)
  Sender: FDA-Public Use
  Company Number: US-ABBVIE-19K-163-2925849-00

PATIENT
  Age: 58 Year
  Sex: Male

DRUGS (3)
  1. VENCLEXTA [Suspect]
     Active Substance: VENETOCLAX
     Route: 048
  2. VENCLEXTA [Suspect]
     Active Substance: VENETOCLAX
     Indication: CHRONIC LYMPHOCYTIC LEUKAEMIA
     Route: 048
     Dates: start: 201808
  3. VENCLEXTA [Suspect]
     Active Substance: VENETOCLAX
     Route: 048

REACTIONS (21)
  - Mean platelet volume increased [Unknown]
  - Diarrhoea [Recovered/Resolved]
  - Muscle strain [Unknown]
  - Pneumonia pseudomonal [Unknown]
  - Neutropenia [Unknown]
  - Hypogammaglobulinaemia [Unknown]
  - Asthenopia [Unknown]
  - Blood glucose increased [Unknown]
  - Psoriatic arthropathy [Unknown]
  - White blood cell count decreased [Unknown]
  - Monocyte count increased [Unknown]
  - Blood creatinine increased [Unknown]
  - Musculoskeletal stiffness [Unknown]
  - Cardiac failure congestive [Unknown]
  - Transaminases increased [Unknown]
  - Platelet count decreased [Unknown]
  - Arthralgia [Unknown]
  - Mean cell haemoglobin concentration increased [Unknown]
  - Vomiting [Unknown]
  - Cardiac flutter [Unknown]
  - Muscle twitching [Unknown]

NARRATIVE: CASE EVENT DATE: 202001
